FAERS Safety Report 5485706-8 (Version None)
Quarter: 2007Q4

REPORT INFORMATION
  Report Type: 
  Country: None (occurrence: None)
  Receive Date: 20071015
  Receipt Date: 20071003
  Transmission Date: 20080405
  Serious: Yes (Other)
  Sender: FDA-Public Use
  Company Number: CO-ROCHE-523134

PATIENT
  Age: 57 Year
  Sex: Female
  Weight: 63 kg

DRUGS (4)
  1. BONIVA [Suspect]
     Indication: OSTEOPOROSIS
     Route: 048
     Dates: start: 20070729
  2. CALCITRIOL [Concomitant]
     Indication: OSTEOPOROSIS
     Dosage: DRUG NAME REPORTED: CALCITRIOL PLUS; DOSAGE REGIMEN: DAILY
     Route: 048
     Dates: start: 19950101
  3. CENTRUM [Concomitant]
     Dosage: DOSAGE REGIMEN: DAILY
     Route: 048
     Dates: start: 19950101
  4. ASPIRIN [Concomitant]
     Dosage: DOSAGE REGIMEN: DAILY
     Route: 048
     Dates: start: 19800101

REACTIONS (4)
  - BONE PAIN [None]
  - DISCOMFORT [None]
  - MIGRAINE [None]
  - MUSCULAR WEAKNESS [None]
